FAERS Safety Report 5261195-3 (Version None)
Quarter: 2007Q1

REPORT INFORMATION
  Report Type: 
  Country: None (occurrence: None)
  Receive Date: 20070309
  Receipt Date: 20070228
  Transmission Date: 20070707
  Serious: Yes (Hospitalization, Other)
  Sender: FDA-Public Use
  Company Number: JP-PFIZER INC-2007012903

PATIENT
  Sex: Male
  Weight: 85 kg

DRUGS (12)
  1. ZOLOFT [Suspect]
     Indication: DEPRESSION
     Route: 048
     Dates: start: 20060727, end: 20061221
  2. ZOLOFT [Suspect]
     Indication: ANXIETY
  3. EVAMYL [Suspect]
     Indication: INSOMNIA
     Route: 048
  4. DEPAS [Suspect]
     Indication: ANXIETY
     Route: 048
  5. DEPAS [Suspect]
     Indication: DEPRESSION
  6. CLARITIN [Suspect]
     Indication: ASTHMA
     Route: 048
  7. ALL OTHER THERAPEUTIC PRODUCTS [Suspect]
     Indication: NASOPHARYNGITIS
     Route: 048
     Dates: start: 20060901, end: 20061221
  8. FLUTICASONE PROPIONATE [Concomitant]
     Route: 055
  9. HOKUNALIN [Concomitant]
     Route: 062
  10. LEVOFLOXACIN [Concomitant]
     Indication: NASOPHARYNGITIS
     Dosage: DAILY DOSE:100MG
     Route: 048
     Dates: start: 20061101, end: 20061221
  11. EPRAZINONE HYDROCHLORIDE [Concomitant]
     Indication: COUGH
     Route: 048
     Dates: start: 20061201, end: 20061221
  12. LOXONIN [Concomitant]
     Indication: BACK PAIN
     Route: 048

REACTIONS (5)
  - FALL [None]
  - FOOT FRACTURE [None]
  - LOSS OF CONSCIOUSNESS [None]
  - NERVOUS SYSTEM DISORDER [None]
  - URINARY RETENTION [None]
